FAERS Safety Report 5622391-6 (Version None)
Quarter: 2008Q1

REPORT INFORMATION
  Report Type: 
  Country: None (occurrence: None)
  Receive Date: 20080114
  Receipt Date: 20070627
  Transmission Date: 20080703
  Serious: Yes (Hospitalization)
  Sender: FDA-Public Use
  Company Number: A03200704355

PATIENT
  Age: 60 Year
  Sex: Female
  Weight: 63.49 kg

DRUGS (6)
  1. PLAVIX [Suspect]
     Indication: MYOCARDIAL INFARCTION
     Dosage: 75 MG, QD, ORAL
     Route: 048
     Dates: start: 20041125, end: 20041127
  2. ALPRAZOLAM [Concomitant]
  3. ESOMEPRAZOLE [Concomitant]
  4. FEXOFENADINE HYDROCHLORIDE [Concomitant]
  5. SUMATRIPTAN SUCCINATE [Concomitant]
  6. ESTROGENS CONJUGATED [Concomitant]

REACTIONS (2)
  - DRUG ERUPTION [None]
  - SKIN BURNING SENSATION [None]
